FAERS Safety Report 6522003-3 (Version None)
Quarter: 2009Q4

REPORT INFORMATION
  Report Type: 
  Country: None (occurrence: None)
  Receive Date: 20091230
  Receipt Date: 20091216
  Transmission Date: 20100525
  Serious: Yes (Other)
  Sender: FDA-Public Use
  Company Number: US-PFIZER INC-2009311844

PATIENT
  Sex: Female
  Weight: 60 kg

DRUGS (4)
  1. GENOTROPIN [Suspect]
     Indication: HYPOPITUITARISM
     Dosage: 2.2 MG, 1X/DAY
     Route: 058
     Dates: start: 20090205, end: 20091117
  2. CORTEF [Concomitant]
     Indication: HYPOPITUITARISM
     Dosage: UNK
  3. DDAVP [Concomitant]
     Indication: HYPOPITUITARISM
     Dosage: UNK
  4. LEVOTHYROXINE SODIUM [Concomitant]
     Indication: HYPOPITUITARISM
     Dosage: UNK

REACTIONS (2)
  - ASTROCYTOMA [None]
  - CONDITION AGGRAVATED [None]
